FAERS Safety Report 7432054-2 (Version None)
Quarter: 2011Q2

REPORT INFORMATION
  Report Type: 
  Country: None (occurrence: None)
  Receive Date: 20110419
  Receipt Date: 20110419
  Transmission Date: 20111010
  Serious: No
  Sender: FDA-Public Use
  Company Number: None

PATIENT
  Age: 31 Year
  Sex: Female
  Weight: 63.5036 kg

DRUGS (1)
  1. EMSAM [Suspect]
     Indication: MAJOR DEPRESSION
     Dosage: ONE DAILY TRANSDERMAL
     Route: 062

REACTIONS (2)
  - ALCOHOL USE [None]
  - DRUG SCREEN POSITIVE [None]
